FAERS Safety Report 21583710 (Version 3)
Quarter: 2022Q4

REPORT INFORMATION
  Report Type: Spontaneous
  Country: US (occurrence: US)
  Receive Date: 20221111
  Receipt Date: 20221214
  Transmission Date: 20230113
  Serious: No
  Sender: FDA-Public Use
  Company Number: US-GSKCCFUS-Case-01547620_AE-87584

PATIENT
  Sex: Male

DRUGS (5)
  1. NUCALA [Suspect]
     Active Substance: MEPOLIZUMAB
     Indication: Nasal polyps
     Dosage: 100 MG, Z 1 PER 28 DAYS
  2. NUCALA [Suspect]
     Active Substance: MEPOLIZUMAB
     Indication: Tinnitus
     Dosage: UNK
     Dates: start: 20220921
  3. NUCALA [Suspect]
     Active Substance: MEPOLIZUMAB
     Indication: Product used for unknown indication
     Dosage: UNK
  4. OMEPRAZOLE [Concomitant]
     Active Substance: OMEPRAZOLE
     Indication: Gastrooesophageal reflux disease
     Dosage: 40 MG
  5. BUSPIRONE [Concomitant]
     Active Substance: BUSPIRONE HYDROCHLORIDE
     Indication: Nervousness
     Dosage: 10 MG

REACTIONS (5)
  - Tinnitus [Not Recovered/Not Resolved]
  - Insomnia [Unknown]
  - Discomfort [Unknown]
  - Drug ineffective [Not Recovered/Not Resolved]
  - Product use in unapproved indication [Unknown]
